FAERS Safety Report 5884301-6 (Version None)
Quarter: 2008Q3

REPORT INFORMATION
  Report Type: 
  Country: None (occurrence: None)
  Receive Date: 20080915
  Receipt Date: 20080902
  Transmission Date: 20090109
  Serious: Yes (Other)
  Sender: FDA-Public Use
  Company Number: PHHO1997CA00671

PATIENT
  Sex: Male
  Weight: 95 kg

DRUGS (6)
  1. SANDIMMUNE [Suspect]
     Route: 048
     Dates: start: 19960724
  2. MYCOSTATIN [Concomitant]
     Dosage: UNSPECIFIED
     Route: 048
     Dates: start: 19960722
  3. LASIX [Concomitant]
     Dosage: UNSPECIFIED
     Route: 048
     Dates: start: 19960801
  4. PRINIVIL [Concomitant]
     Dosage: UNSPECIFIED
     Route: 048
     Dates: start: 19961108
  5. EMPRACET [Concomitant]
     Dosage: UNSPECIFIED
     Route: 048
     Dates: start: 19961121
  6. PREDNISONE TAB [Concomitant]

REACTIONS (2)
  - LUNG NEOPLASM MALIGNANT [None]
  - METASTASES TO LIVER [None]
